FAERS Safety Report 15565598 (Version 1)
Quarter: 2018Q4

REPORT INFORMATION
  Report Type: Other
  Country: ES (occurrence: ES)
  Receive Date: 20181030
  Receipt Date: 20181030
  Transmission Date: 20190205
  Serious: Yes (Other)
  Sender: FDA-Public Use
  Company Number: ES-CELLTRION INC.-2018ES023285

PATIENT

DRUGS (2)
  1. INFLIXIMAB (UNKNOWN) [Suspect]
     Active Substance: INFLIXIMAB
     Indication: ACUTE GENERALISED EXANTHEMATOUS PUSTULOSIS
     Dosage: 5 MG/KG
     Route: 042
  2. METHOTREXATE. [Concomitant]
     Active Substance: METHOTREXATE
     Indication: ACUTE GENERALISED EXANTHEMATOUS PUSTULOSIS
     Dosage: 5 MG, 1 WEEK
     Route: 058

REACTIONS (4)
  - Product use in unapproved indication [Unknown]
  - Off label use [Unknown]
  - Pneumocystis jirovecii pneumonia [Recovering/Resolving]
  - Acute generalised exanthematous pustulosis [Unknown]
